FAERS Safety Report 21724131 (Version 3)
Quarter: 2023Q1

REPORT INFORMATION
  Report Type: Spontaneous
  Country: US (occurrence: US)
  Receive Date: 20221213
  Receipt Date: 20230314
  Transmission Date: 20230418
  Serious: No
  Sender: FDA-Public Use
  Company Number: US-Calliditas-2022CAL00602

PATIENT
  Age: 47 Year
  Sex: Male

DRUGS (3)
  1. TARPEYO [Suspect]
     Active Substance: BUDESONIDE
     Indication: Haematuria
     Dosage: 8 MG (4MG CAPSULES) DAILY
     Route: 048
     Dates: start: 20220824
  2. LISINOPRIL [Concomitant]
     Active Substance: LISINOPRIL
  3. HYDROCHLOROTHIAZIDE [Concomitant]
     Active Substance: HYDROCHLOROTHIAZIDE
     Indication: Blood pressure increased

REACTIONS (4)
  - Prescribed underdose [Unknown]
  - Product dose omission issue [Unknown]
  - Tinnitus [Unknown]
  - Blood pressure increased [Unknown]
